FAERS Safety Report 4591960-7 (Version None)
Quarter: 2005Q1

REPORT INFORMATION
  Report Type: 
  Country: None (occurrence: None)
  Receive Date: 20050222
  Receipt Date: 20050121
  Transmission Date: 20050727
  Serious: No
  Sender: FDA-Public Use
  Company Number: 200510248BCC

PATIENT
  Age: 40 Year
  Sex: Female
  Weight: 90.7194 kg

DRUGS (2)
  1. ALEVE (CAPLET) [Suspect]
     Indication: DYSMENORRHOEA
     Dosage: Q1MON, ORAL
     Route: 048
     Dates: end: 20041217
  2. EFFEXOR [Concomitant]

REACTIONS (1)
  - HEART RATE IRREGULAR [None]
